FAERS Safety Report 8847023 (Version 1)
Quarter: 2012Q4

REPORT INFORMATION
  Report Type: 
  Country: IT (occurrence: IT)
  Receive Date: 20121018
  Receipt Date: 20121018
  Transmission Date: 20130627
  Serious: Yes (Life-Threatening)
  Sender: FDA-Public Use
  Company Number: IT-RANBAXY-2012R1-60899

PATIENT
  Sex: Female

DRUGS (1)
  1. PARACETAMOL [Suspect]
     Indication: PRODUCT USED FOR UNKNOWN INDICATION
     Dosage: UNK
     Route: 065

REACTIONS (3)
  - Suicide attempt [Not Recovered/Not Resolved]
  - Overdose [Not Recovered/Not Resolved]
  - Hepatitis [Not Recovered/Not Resolved]
